FAERS Safety Report 24777234 (Version 1)
Quarter: 2024Q4

REPORT INFORMATION
  Report Type: Spontaneous
  Country: US (occurrence: US)
  Receive Date: 20241226
  Receipt Date: 20241226
  Transmission Date: 20250114
  Serious: No
  Sender: TORRENT PHARMA INC.
  Company Number: US-TORRENT-00013913

PATIENT
  Age: 75 Year
  Sex: Female

DRUGS (1)
  1. CITALOPRAM [Suspect]
     Active Substance: CITALOPRAM
     Indication: Anxiety
     Route: 048

REACTIONS (4)
  - Off label use [Unknown]
  - Product substitution issue [Unknown]
  - Anxiety [Unknown]
  - Drug effective for unapproved indication [Unknown]
